FAERS Safety Report 8413815-X (Version None)
Quarter: 2012Q2

REPORT INFORMATION
  Report Type: 
  Country: None (occurrence: None)
  Receive Date: 20120605
  Receipt Date: 20120528
  Transmission Date: 20120825
  Serious: Yes (Other)
  Sender: FDA-Public Use
  Company Number: JP-MERCK-1205USA05417

PATIENT
  Age: 65 Year
  Sex: Male

DRUGS (2)
  1. COZAAR [Suspect]
     Route: 048
  2. VITAMIN B12 [Concomitant]
     Route: 048

REACTIONS (3)
  - STEVENS-JOHNSON SYNDROME [None]
  - DRUG ADMINISTRATION ERROR [None]
  - HEPATIC FUNCTION ABNORMAL [None]
